FAERS Safety Report 20827913 (Version 2)
Quarter: 2022Q2

REPORT INFORMATION
  Report Type: Spontaneous
  Country: NL (occurrence: NL)
  Receive Date: 20220513
  Receipt Date: 20220517
  Transmission Date: 20220721
  Serious: Yes (Other)
  Sender: FDA-Public Use
  Company Number: NL-VER-202200048

PATIENT
  Sex: Male

DRUGS (1)
  1. TRIPTORELIN PAMOATE [Suspect]
     Active Substance: TRIPTORELIN PAMOATE
     Indication: Prostate cancer
     Dosage: (1 DOSAGE FORMS,6 M)
     Route: 065
     Dates: start: 20211130, end: 20211201

REACTIONS (5)
  - Suicide attempt [Not Recovered/Not Resolved]
  - Confusional state [Not Recovered/Not Resolved]
  - Nervousness [Not Recovered/Not Resolved]
  - Negative thoughts [Not Recovered/Not Resolved]
  - Asthenia [Not Recovered/Not Resolved]
